FAERS Safety Report 6561200-8 (Version None)
Quarter: 2010Q1

REPORT INFORMATION
  Report Type: 
  Country: None (occurrence: None)
  Receive Date: 20100130
  Receipt Date: 20091007
  Transmission Date: 20100710
  Serious: No
  Sender: FDA-Public Use
  Company Number: US-ABBOTT-09P-163-0601945-00

PATIENT
  Sex: Female
  Weight: 88.984 kg

DRUGS (9)
  1. HUMIRA [Suspect]
     Indication: RHEUMATOID ARTHRITIS
     Route: 058
     Dates: start: 20090204, end: 20090813
  2. SYNTHROID [Concomitant]
     Indication: HYPOTHYROIDISM
     Dosage: NOT REPORTED
  3. ZOLOFT [Concomitant]
     Indication: DRUG USE FOR UNKNOWN INDICATION
  4. PREMARIN [Concomitant]
     Indication: DRUG USE FOR UNKNOWN INDICATION
  5. LORAZEPAM [Concomitant]
     Indication: DRUG USE FOR UNKNOWN INDICATION
  6. TEMAZEPAM [Concomitant]
     Indication: DRUG USE FOR UNKNOWN INDICATION
  7. DAYPRO [Concomitant]
     Indication: DRUG USE FOR UNKNOWN INDICATION
  8. METAMUCIL [Concomitant]
     Indication: DRUG USE FOR UNKNOWN INDICATION
  9. PREVACID [Concomitant]
     Indication: DRUG USE FOR UNKNOWN INDICATION

REACTIONS (1)
  - EPISTAXIS [None]
